FAERS Safety Report 7135445-2 (Version None)
Quarter: 2010Q4

REPORT INFORMATION
  Report Type: 
  Country: None (occurrence: None)
  Receive Date: 20101119
  Receipt Date: 20101109
  Transmission Date: 20110411
  Serious: Yes (Death, Other)
  Sender: FDA-Public Use
  Company Number: 1000016561

PATIENT
  Age: 65 Year
  Sex: Female
  Weight: 135.6 kg

DRUGS (12)
  1. LEXAPRO [Suspect]
     Indication: GENERALISED ANXIETY DISORDER
     Dosage: 10 MG (10 MG, 1 IN 1 D), ORAL, 20 MG (20 MG, 1 IN 1 D), ORAL
     Route: 048
     Dates: start: 20100331, end: 20100411
  2. LEXAPRO [Suspect]
     Indication: MAJOR DEPRESSION
     Dosage: 10 MG (10 MG, 1 IN 1 D), ORAL, 20 MG (20 MG, 1 IN 1 D), ORAL
     Route: 048
     Dates: start: 20100331, end: 20100411
  3. LEXAPRO [Suspect]
     Indication: GENERALISED ANXIETY DISORDER
     Dosage: 10 MG (10 MG, 1 IN 1 D), ORAL, 20 MG (20 MG, 1 IN 1 D), ORAL
     Route: 048
     Dates: start: 20100412, end: 20100421
  4. LEXAPRO [Suspect]
     Indication: MAJOR DEPRESSION
     Dosage: 10 MG (10 MG, 1 IN 1 D), ORAL, 20 MG (20 MG, 1 IN 1 D), ORAL
     Route: 048
     Dates: start: 20100412, end: 20100421
  5. XANAX [Suspect]
     Indication: ANXIETY
     Dosage: 1 MG (1 MG, 1 IN 1 D), ORAL
     Route: 048
     Dates: start: 20100405, end: 20100421
  6. XANAX [Suspect]
     Indication: INSOMNIA
     Dosage: 1 MG (1 MG, 1 IN 1 D), ORAL
     Route: 048
     Dates: start: 20100405, end: 20100421
  7. SAPHRIS [Suspect]
     Dosage: 5 MG (5 MG, 1 IN 1 D), ORAL
     Route: 048
     Dates: start: 20100419, end: 20100421
  8. VICODIN [Suspect]
     Route: 048
     Dates: start: 20100420, end: 20100420
  9. TRIAMTERENE (TRIAMTERENE) (TRIAMTERENE) [Concomitant]
  10. ATACAND (CANDESARTAN) (CANDESARTAN) [Concomitant]
  11. SIMVASTATIN [Concomitant]
  12. FAMOTIDINE [Concomitant]

REACTIONS (10)
  - BIPOLAR I DISORDER [None]
  - CARDIOMEGALY [None]
  - COMPLETED SUICIDE [None]
  - DRUG TOXICITY [None]
  - LEFT VENTRICULAR HYPERTROPHY [None]
  - NEPHROSCLEROSIS [None]
  - PNEUMOCONIOSIS [None]
  - PULMONARY CONGESTION [None]
  - SELF-MEDICATION [None]
  - VISCERAL CONGESTION [None]
